FAERS Safety Report 10624653 (Version 1)
Quarter: 2014Q4

REPORT INFORMATION
  Report Type: Spontaneous
  Country: US (occurrence: US)
  Receive Date: 20141203
  Receipt Date: 20141203
  Transmission Date: 20150529
  Serious: No
  Sender: FDA-Public Use
  Company Number: US-ASTRAZENECA-2014SE92072

PATIENT
  Age: 61 Year
  Sex: Female
  Weight: 51 kg

DRUGS (7)
  1. NEXIUM 24HR [Suspect]
     Active Substance: ESOMEPRAZOLE MAGNESIUM
     Indication: ABDOMINAL PAIN UPPER
     Route: 048
     Dates: start: 201411, end: 20141121
  2. BENICAR [Concomitant]
     Active Substance: OLMESARTAN MEDOXOMIL
     Dosage: DAILY
  3. BREO ELLIPTA [Concomitant]
     Active Substance: FLUTICASONE FUROATE\VILANTEROL TRIFENATATE
     Dosage: 100 MCG/25 MCG INHALED ONCE A DAY
  4. NEXIUM 24HR [Suspect]
     Active Substance: ESOMEPRAZOLE MAGNESIUM
     Indication: ABDOMINAL DISCOMFORT
     Route: 048
     Dates: start: 201411, end: 20141121
  5. METOPROLOL [Concomitant]
     Active Substance: METOPROLOL
  6. TUDORZA PRESSAIR [Concomitant]
     Active Substance: ACLIDINIUM BROMIDE
  7. ARCAPTA NEOHALER [Concomitant]
     Active Substance: INDACATEROL MALEATE

REACTIONS (2)
  - Intentional product misuse [Unknown]
  - Visual field defect [Recovering/Resolving]

NARRATIVE: CASE EVENT DATE: 201411
